FAERS Safety Report 7795191-9 (Version None)
Quarter: 2011Q4

REPORT INFORMATION
  Report Type: 
  Country: None (occurrence: None)
  Receive Date: 20111004
  Receipt Date: 20110923
  Transmission Date: 20120403
  Serious: Yes (Hospitalization)
  Sender: FDA-Public Use
  Company Number: US-BAYER-2011-091321

PATIENT
  Sex: Female
  Weight: 92.971 kg

DRUGS (9)
  1. TYLENOL-500 [Concomitant]
     Indication: ANALGESIC THERAPY
     Dosage: UNK
     Dates: start: 20100524, end: 20100614
  2. YASMIN [Suspect]
     Dosage: UNK
     Dates: start: 20090201, end: 20100601
  3. TIZANIDINE HCL [Concomitant]
     Indication: NECK INJURY
     Dosage: UNK
     Dates: start: 20091101, end: 20101201
  4. DROSPIRENONE AND ETHINYL ESTRADIOL [Suspect]
     Indication: ACNE
     Dosage: UNK
     Dates: start: 20090201, end: 20100601
  5. GABAPENTIN [Concomitant]
     Indication: NEURALGIA
     Dosage: UNK
     Dates: start: 20090701, end: 20101201
  6. YASMIN [Suspect]
     Indication: CONTRACEPTION
     Dosage: UNK
     Dates: start: 20010101
  7. DICLOFENAC SODIUM [Concomitant]
     Indication: NECK INJURY
     Dosage: UNK
     Dates: start: 20090701, end: 20101201
  8. YASMIN [Suspect]
     Indication: ACNE
     Dosage: UNK
     Dates: start: 20080201, end: 20100601
  9. SIMVASTATIN [Concomitant]
     Indication: BLOOD CHOLESTEROL INCREASED
     Dosage: UNK
     Dates: start: 20090101

REACTIONS (1)
  - CHOLECYSTECTOMY [None]
